FAERS Safety Report 7016421-7 (Version None)
Quarter: 2010Q3

REPORT INFORMATION
  Report Type: 
  Country: None (occurrence: None)
  Receive Date: 20100927
  Receipt Date: 20100915
  Transmission Date: 20110219
  Serious: Yes (Other)
  Sender: FDA-Public Use
  Company Number: US-ELI_LILLY_AND_COMPANY-US201002003175

PATIENT
  Sex: Female

DRUGS (2)
  1. FORTEO [Suspect]
     Indication: OSTEOPOROSIS
     Dosage: 20 UG, DAILY (1/D)
     Dates: start: 20100204
  2. FORTEO [Suspect]
     Dosage: 20 UG, DAILY (1/D)

REACTIONS (23)
  - ABDOMINAL DISCOMFORT [None]
  - ATROPHY [None]
  - DIARRHOEA [None]
  - DYSPHONIA [None]
  - EAR DISCOMFORT [None]
  - ERUCTATION [None]
  - FLATULENCE [None]
  - HERPES ZOSTER [None]
  - HYPERSENSITIVITY [None]
  - HYPOAESTHESIA [None]
  - INJECTION SITE ERYTHEMA [None]
  - INJECTION SITE HAEMATOMA [None]
  - INJECTION SITE RASH [None]
  - IRRITABILITY [None]
  - NAUSEA [None]
  - NECROSIS [None]
  - PAIN [None]
  - PRURITUS [None]
  - RASH [None]
  - RASH PRURITIC [None]
  - RHINORRHOEA [None]
  - THROAT IRRITATION [None]
  - WEIGHT INCREASED [None]
